FAERS Safety Report 10781554 (Version 2)
Quarter: 2015Q1

REPORT INFORMATION
  Report Type: Spontaneous
  Country: IT (occurrence: IT)
  Receive Date: 20150210
  Receipt Date: 20150313
  Transmission Date: 20150721
  Serious: Yes (Life-Threatening, Other)
  Sender: FDA-Public Use
  Company Number: IT-GILEAD-2015-0135849

PATIENT
  Age: 52 Year
  Sex: Male

DRUGS (7)
  1. LASIX [Concomitant]
     Active Substance: FUROSEMIDE
     Dosage: UNK
  2. VIREAD [Suspect]
     Active Substance: TENOFOVIR DISOPROXIL FUMARATE
     Dosage: 1 DF, UNK
     Route: 048
     Dates: start: 20140507, end: 20150110
  3. BISOPROLOL [Concomitant]
     Active Substance: BISOPROLOL
     Dosage: UNK
  4. CREON [Concomitant]
     Active Substance: PANCRELIPASE AMYLASE\PANCRELIPASE LIPASE\PANCRELIPASE PROTEASE
     Dosage: UNK
  5. LANSOPRAZOLE. [Concomitant]
     Active Substance: LANSOPRAZOLE
     Dosage: UNK
  6. INSULIN [Concomitant]
     Active Substance: INSULIN NOS
     Dosage: UNK
  7. VIREAD [Suspect]
     Active Substance: TENOFOVIR DISOPROXIL FUMARATE
     Indication: HEPATIC CIRRHOSIS
     Dosage: 1 DF, UNK
     Route: 048
     Dates: start: 20150118

REACTIONS (5)
  - Dehydration [Unknown]
  - Hypertensive heart disease [Unknown]
  - Diabetic nephropathy [Unknown]
  - Acute kidney injury [Recovered/Resolved]
  - Malnutrition [Unknown]

NARRATIVE: CASE EVENT DATE: 20150111
